FAERS Safety Report 9555839 (Version 3)
Quarter: 2013Q4

REPORT INFORMATION
  Report Type: Spontaneous
  Country: US (occurrence: US)
  Receive Date: 20130926
  Receipt Date: 20131017
  Transmission Date: 20140711
  Serious: Yes (Other)
  Sender: FDA-Public Use
  Company Number: US-JNJFOC-20130909888

PATIENT
  Sex: Female

DRUGS (4)
  1. IBUPROFEN [Suspect]
     Route: 065
  2. IBUPROFEN [Suspect]
     Indication: ARTHRITIS
     Route: 065
  3. ASPIRIN [Suspect]
     Indication: PRODUCT USED FOR UNKNOWN INDICATION
     Route: 065
  4. COUMADIN [Suspect]
     Indication: PRODUCT USED FOR UNKNOWN INDICATION
     Route: 065

REACTIONS (2)
  - Haemorrhage [Unknown]
  - Haematochezia [Unknown]
